FAERS Safety Report 7018020-X (Version None)
Quarter: 2010Q3

REPORT INFORMATION
  Report Type: 
  Country: None (occurrence: None)
  Receive Date: 20100928
  Receipt Date: 20100916
  Transmission Date: 20110219
  Serious: Yes (Hospitalization, Other)
  Sender: FDA-Public Use
  Company Number: PHHY2010US42712

PATIENT
  Sex: Female

DRUGS (16)
  1. EXJADE [Suspect]
     Indication: SICKLE CELL ANAEMIA
     Dosage: 3000 MG, QD
     Route: 048
     Dates: start: 20090319
  2. EXJADE [Suspect]
     Indication: IRON OVERLOAD
  3. AMOXICILLIN [Concomitant]
     Dosage: 875 MG, DU
     Dates: start: 20100617
  4. ASPIRIN [Concomitant]
     Dosage: 81 MG, DAILY
     Dates: start: 20050804
  5. CARBAMIDE PEROXIDE [Concomitant]
     Dosage: UNK
     Dates: start: 20100617
  6. CALADRYL (DIPHENHYDRAMINE HCL) [Concomitant]
     Indication: PRURITUS
     Dosage: 25 MG, PRNQID
     Dates: start: 20091027
  7. DOCUSATE SODIUM [Concomitant]
     Dosage: 100 MG, TWICE DAILY
     Dates: start: 20080319
  8. FENTANYL CITRATE [Concomitant]
     Dosage: 100 MCH/HR 2 PATCH 72 HOURS
     Dates: start: 20100407
  9. FEXOFENADINE HCL [Concomitant]
     Indication: HYPERSENSITIVITY
     Dosage: 60 MG, TWICE DAILY
     Dates: start: 20100617
  10. FOLIC ACID [Concomitant]
     Dosage: 1 MG, DAILY
     Dates: start: 20050804
  11. LANSOPRAZOLE [Concomitant]
     Dosage: 30 MG, DAILY
     Dates: start: 20100225
  12. LISINOPRIL [Concomitant]
     Dosage: 10 MG, 1/2 TABLET DAILY
     Dates: start: 20091209
  13. LORAZEPAM [Concomitant]
     Indication: ANXIETY
     Dosage: 1 MG, PRNQID
     Dates: start: 20090810
  14. MORPHINE SULFATE [Concomitant]
     Dosage: 1.5 ML, EVERY 4 HOURS PRN
     Dates: start: 20100222
  15. MULTI-VITAMINS [Concomitant]
     Dosage: UNK, DAILY
     Dates: start: 20050804
  16. SENNA [Concomitant]
     Indication: CONSTIPATION
     Dosage: 1-2 TABLETS QHS
     Dates: start: 20091202

REACTIONS (16)
  - ABDOMINAL PAIN [None]
  - ALANINE AMINOTRANSFERASE INCREASED [None]
  - ASPARTATE AMINOTRANSFERASE INCREASED [None]
  - BLOOD ALKALINE PHOSPHATASE INCREASED [None]
  - BLOOD BILIRUBIN INCREASED [None]
  - BLOOD LACTATE DEHYDROGENASE INCREASED [None]
  - DIARRHOEA [None]
  - FATIGUE [None]
  - HAEMATOCRIT DECREASED [None]
  - HAEMOGLOBIN DECREASED [None]
  - NAUSEA [None]
  - PLATELET COUNT INCREASED [None]
  - RED BLOOD CELL COUNT DECREASED [None]
  - SICKLE CELL ANAEMIA WITH CRISIS [None]
  - VOMITING [None]
  - WHITE BLOOD CELL COUNT INCREASED [None]
